FAERS Safety Report 7735051-2 (Version None)
Quarter: 2011Q3

REPORT INFORMATION
  Report Type: 
  Country: None (occurrence: None)
  Receive Date: 20110817
  Receipt Date: 20101203
  Transmission Date: 20111222
  Serious: Yes (Hospitalization, Other)
  Sender: FDA-Public Use
  Company Number: 20108537

PATIENT
  Sex: Male

DRUGS (1)
  1. LIORESAL [Suspect]
     Indication: MUSCLE SPASTICITY
     Dosage: 360 MCG, DAILY, INTRATHECAL- SEEB5

REACTIONS (7)
  - PRURITUS [None]
  - HYPERTONIA [None]
  - PYREXIA [None]
  - WITHDRAWAL SYNDROME [None]
  - HOSPITALISATION [None]
  - MUSCLE SPASTICITY [None]
  - MUSCLE SPASMS [None]
